FAERS Safety Report 18587245 (Version 1)
Quarter: 2020Q4

REPORT INFORMATION
  Report Type: Spontaneous
  Country: US (occurrence: US)
  Receive Date: 20201207
  Receipt Date: 20201207
  Transmission Date: 20210114
  Serious: No
  Sender: FDA-Public Use
  Company Number: US-LANNETT COMPANY, INC.-US-2019LAN001134

PATIENT
  Age: 34 Year
  Sex: Female

DRUGS (3)
  1. LAMIVUDINE. [Suspect]
     Active Substance: LAMIVUDINE
     Indication: HIV INFECTION
     Dosage: UNK, 1 COURSE; UNSPECIFIED TRIMESTER; BEGAN PRIOR TO CONCEPTION
     Route: 065
  2. ABACAVIR. [Suspect]
     Active Substance: ABACAVIR
     Indication: HIV INFECTION
     Dosage: UNK, 1 COURSE; UNSPECIFIED TRIMESTER; BEGAN PRIOR TO CONCEPTION
     Route: 065
  3. DOLUTEGRAVIR [Suspect]
     Active Substance: DOLUTEGRAVIR
     Indication: HIV INFECTION
     Dosage: UNK, 1 COURSE; DURING 2ND TRIMESTER; BEGAN GESTATIONAL WEEK 14
     Route: 065

REACTIONS (2)
  - Exposure during pregnancy [Unknown]
  - No adverse event [Unknown]
